FAERS Safety Report 6941133-5 (Version None)
Quarter: 2010Q3

REPORT INFORMATION
  Report Type: 
  Country: None (occurrence: None)
  Receive Date: 20100825
  Receipt Date: 20100507
  Transmission Date: 20110219
  Serious: No
  Sender: FDA-Public Use
  Company Number: US-BRISTOL-MYERS SQUIBB COMPANY-15102361

PATIENT
  Sex: Female

DRUGS (2)
  1. ONGLYZA [Suspect]
     Indication: TYPE 1 DIABETES MELLITUS
  2. REGULAR INSULIN [Suspect]
     Indication: TYPE 1 DIABETES MELLITUS

REACTIONS (3)
  - OEDEMA PERIPHERAL [None]
  - OFF LABEL USE [None]
  - PAIN IN EXTREMITY [None]
